FAERS Safety Report 6722751-6 (Version None)
Quarter: 2010Q2

REPORT INFORMATION
  Report Type: 
  Country: None (occurrence: None)
  Receive Date: 20100511
  Receipt Date: 20100426
  Transmission Date: 20101027
  Serious: Yes (Hospitalization)
  Sender: FDA-Public Use
  Company Number: 1000013623

PATIENT
  Age: 32 Year
  Sex: Female

DRUGS (4)
  1. DINOPROSTONE (DINOPROSTONE) (VAGINAL INSERT) [Suspect]
     Indication: LABOUR INDUCTION
     Dosage: (10 MG,ONCE),VAGINAL
     Route: 067
     Dates: start: 20100306, end: 20100307
  2. BUPIVACAINE HCL [Concomitant]
  3. ENTONOX [Concomitant]
  4. RANITIDINE [Concomitant]

REACTIONS (5)
  - APPLICATION SITE HYPERSENSITIVITY [None]
  - CAESAREAN SECTION [None]
  - DRUG ERUPTION [None]
  - HERPES GESTATIONIS [None]
  - PRURITUS [None]
